FAERS Safety Report 11588233 (Version 1)
Quarter: 2015Q4

REPORT INFORMATION
  Report Type: Spontaneous
  Country: FR (occurrence: FR)
  Receive Date: 20151002
  Receipt Date: 20151002
  Transmission Date: 20160304
  Serious: Yes (Other)
  Sender: FDA-Public Use
  Company Number: FR-009507513-1509FRA013503

PATIENT
  Sex: Female

DRUGS (5)
  1. SINEMET [Suspect]
     Active Substance: CARBIDOPA\LEVODOPA
     Indication: PARKINSONISM
     Dosage: 100 MG, TID
     Route: 048
     Dates: start: 2006
  2. SIFROL [Suspect]
     Active Substance: PRAMIPEXOLE
     Indication: PARKINSONISM
     Dosage: 1.05 MG, BID
     Route: 048
     Dates: start: 2006
  3. FLUOXETINE HYDROCHLORIDE. [Concomitant]
     Active Substance: FLUOXETINE HYDROCHLORIDE
     Dosage: UNK
     Route: 048
  4. MODOPAR [Suspect]
     Active Substance: BENSERAZIDE HYDROCHLORIDE\LEVODOPA
     Dosage: UNK
  5. STALEVO [Suspect]
     Active Substance: CARBIDOPA\ENTACAPONE\LEVODOPA
     Dosage: UNK
     Route: 048

REACTIONS (2)
  - Impulse-control disorder [Unknown]
  - Bulimia nervosa [Unknown]

NARRATIVE: CASE EVENT DATE: 2010
